FAERS Safety Report 21463219 (Version 3)
Quarter: 2024Q4

REPORT INFORMATION
  Report Type: Spontaneous
  Country: RS (occurrence: RS)
  Receive Date: 20221017
  Receipt Date: 20241029
  Transmission Date: 20250115
  Serious: Yes (Other)
  Sender: NOVARTIS
  Company Number: RS-NOVARTISPH-NVSC2022RS232539

PATIENT
  Age: 48 Year
  Sex: Male

DRUGS (3)
  1. COSENTYX [Suspect]
     Active Substance: SECUKINUMAB
     Indication: Psoriasis
     Dosage: UNK (ROUTE: INJECTION)
     Route: 065
     Dates: start: 202006
  2. COSENTYX [Suspect]
     Active Substance: SECUKINUMAB
     Dosage: UNK
     Route: 065
     Dates: start: 202202
  3. COSENTYX [Suspect]
     Active Substance: SECUKINUMAB
     Dosage: 300 MG, Q2W (ROUTE: INJECTION)
     Route: 065
     Dates: start: 202302

REACTIONS (2)
  - Hepatitis B [Recovered/Resolved]
  - Chronic hepatitis B [Unknown]

NARRATIVE: CASE EVENT DATE: 20201101
